FAERS Safety Report 8847740 (Version 1)
Quarter: 2012Q4

REPORT INFORMATION
  Report Type: 
  Country: US (occurrence: US)
  Receive Date: 20121018
  Receipt Date: 20121018
  Transmission Date: 20130627
  Serious: No
  Sender: FDA-Public Use
  Company Number: US-009507513-1209USA010374

PATIENT
  Sex: Female

DRUGS (1)
  1. PRINIVIL [Suspect]
     Indication: BLOOD PRESSURE
     Dosage: 10 mg, UNK
     Route: 048
     Dates: start: 2004

REACTIONS (2)
  - Cough [Not Recovered/Not Resolved]
  - Increased upper airway secretion [Not Recovered/Not Resolved]
